FAERS Safety Report 8950366 (Version 1)
Quarter: 2012Q4

REPORT INFORMATION
  Report Type: Spontaneous
  Country: US (occurrence: None)
  Receive Date: 20121130
  Receipt Date: 20121130
  Transmission Date: 20130627
  Serious: Yes (Death)
  Sender: FDA-Public Use
  Company Number: None

PATIENT
  Age: 85 Year
  Sex: Female

DRUGS (2)
  1. AVASTIN [Suspect]
     Indication: WET MACULAR DEGENERATION
     Route: 031
     Dates: start: 20060822, end: 20071207
  2. LUCENTIS [Suspect]
     Indication: WET MACULAR DEGENERATION
     Route: 031
     Dates: start: 20080613, end: 20120822

REACTIONS (1)
  - Death [None]
